FAERS Safety Report 22517506 (Version 2)
Quarter: 2023Q2

REPORT INFORMATION
  Report Type: Spontaneous
  Country: FR (occurrence: FR)
  Receive Date: 20230604
  Receipt Date: 20230623
  Transmission Date: 20230722
  Serious: Yes (Other)
  Sender: FDA-Public Use
  Company Number: FR-AFSSAPS-LL2023000832

PATIENT
  Age: 59 Year
  Sex: Female

DRUGS (1)
  1. LANSOPRAZOLE [Suspect]
     Active Substance: LANSOPRAZOLE
     Indication: Short-bowel syndrome
     Dosage: 120 MILLIGRAM, DAILY (60MG 2/J)
     Route: 048
     Dates: end: 20230418

REACTIONS (1)
  - Cytopenia [Recovered/Resolved]

NARRATIVE: CASE EVENT DATE: 20230301
